FAERS Safety Report 14770528 (Version 4)
Quarter: 2019Q2

REPORT INFORMATION
  Report Type: Spontaneous
  Country: US (occurrence: US)
  Receive Date: 20180417
  Receipt Date: 20190426
  Transmission Date: 20190711
  Serious: Yes (Other)
  Sender: FDA-Public Use
  Company Number: US-PFIZER INC-2018157156

PATIENT
  Sex: Female

DRUGS (4)
  1. PANTOPRAZOLE [Suspect]
     Active Substance: PANTOPRAZOLE
     Dosage: 40 MG, UNK
  2. NEXIUM [Suspect]
     Active Substance: ESOMEPRAZOLE MAGNESIUM
     Dosage: 20 MG, UNK
     Dates: start: 2010, end: 2016
  3. NEXIUM 24HR [Suspect]
     Active Substance: ESOMEPRAZOLE MAGNESIUM
     Dosage: UNK
     Dates: end: 2016
  4. PROTONIX [Suspect]
     Active Substance: PANTOPRAZOLE SODIUM
     Dosage: 40 MG, UNK
     Dates: start: 2010, end: 2016

REACTIONS (11)
  - Localised infection [Unknown]
  - Hyperparathyroidism secondary [Unknown]
  - Electrolyte imbalance [Unknown]
  - Coronary artery disease [Unknown]
  - Nephropathy [Unknown]
  - Hyperkalaemia [Unknown]
  - Hypertension [Unknown]
  - Chronic kidney disease [Unknown]
  - End stage renal disease [Unknown]
  - Anaemia [Unknown]
  - Acidosis [Unknown]
